FAERS Safety Report 11284873 (Version 1)
Quarter: 2015Q3

REPORT INFORMATION
  Report Type: Spontaneous
  Country: US (occurrence: US)
  Receive Date: 20150720
  Receipt Date: 20150720
  Transmission Date: 20151125
  Serious: No
  Sender: FDA-Public Use
  Company Number: US-GILEAD-2015-0163864

PATIENT
  Age: 59 Year
  Sex: Male

DRUGS (6)
  1. ENBREL [Suspect]
     Active Substance: ETANERCEPT
     Indication: PRODUCT USED FOR UNKNOWN INDICATION
     Dosage: UNK
     Route: 065
     Dates: end: 201501
  2. SERTRALINE [Concomitant]
     Active Substance: SERTRALINE HYDROCHLORIDE
  3. HARVONI [Suspect]
     Active Substance: LEDIPASVIR\SOFOSBUVIR
     Indication: HEPATITIS C
     Dosage: UNK
     Route: 065
     Dates: start: 20141111, end: 20150511
  4. IRBESARTAN. [Concomitant]
     Active Substance: IRBESARTAN
  5. RIFAXIMIN [Concomitant]
     Active Substance: RIFAXIMIN
  6. NADOLOL. [Concomitant]
     Active Substance: NADOLOL

REACTIONS (1)
  - Muscle spasms [Unknown]
